FAERS Safety Report 5290543-3 (Version None)
Quarter: 2007Q2

REPORT INFORMATION
  Report Type: 
  Country: None (occurrence: None)
  Receive Date: 20070409
  Receipt Date: 20070403
  Transmission Date: 20071010
  Serious: Yes (Hospitalization)
  Sender: FDA-Public Use
  Company Number: JP-BRISTOL-MYERS SQUIBB COMPANY-13739966

PATIENT
  Age: 74 Year
  Sex: Female

DRUGS (10)
  1. TAXOL [Suspect]
     Indication: UTERINE CANCER
     Route: 041
     Dates: start: 20061011, end: 20061011
  2. PARAPLATIN [Suspect]
     Indication: UTERINE CANCER
     Route: 041
     Dates: start: 20061011, end: 20061011
  3. NASEA [Concomitant]
     Route: 041
     Dates: start: 20060920, end: 20070110
  4. BLOPRESS [Concomitant]
     Route: 048
     Dates: start: 19980101
  5. FERROMIA [Concomitant]
     Route: 048
     Dates: start: 20060929
  6. HALCION [Concomitant]
     Route: 048
  7. DEXAMETHASONE SODIUM PHOSPHATE [Concomitant]
     Dates: start: 20060920, end: 20070110
  8. DIPHENHYDRAMINE HCL [Concomitant]
     Dates: start: 20060920, end: 20070110
  9. ZANTAC [Concomitant]
     Route: 042
     Dates: start: 20060920, end: 20070110
  10. LANIRAPID [Concomitant]
     Route: 048
     Dates: start: 19980101

REACTIONS (1)
  - ILEUS [None]
